FAERS Safety Report 15863982 (Version 1)
Quarter: 2019Q1

REPORT INFORMATION
  Report Type: Spontaneous
  Country: DE (occurrence: DE)
  Receive Date: 20190124
  Receipt Date: 20190124
  Transmission Date: 20190417
  Serious: Yes (Hospitalization, Other)
  Sender: FDA-Public Use
  Company Number: DE-JNJFOC-20190123385

PATIENT
  Age: 2 Year
  Sex: Male

DRUGS (1)
  1. REMICADE [Suspect]
     Active Substance: INFLIXIMAB
     Indication: INFLAMMATORY BOWEL DISEASE
     Route: 042

REACTIONS (8)
  - Intestinal haemorrhage [Recovering/Resolving]
  - Abdominal pain [Recovering/Resolving]
  - Drug ineffective [Unknown]
  - Colitis [Recovering/Resolving]
  - Decreased appetite [Recovering/Resolving]
  - Large intestinal stenosis [Recovering/Resolving]
  - Product use issue [Unknown]
  - Off label use [Unknown]
